FAERS Safety Report 8605945-4 (Version None)
Quarter: 2012Q3

REPORT INFORMATION
  Report Type: 
  Country: None (occurrence: None)
  Receive Date: 20120820
  Receipt Date: 20120806
  Transmission Date: 20120928
  Serious: Yes (Other)
  Sender: FDA-Public Use
  Company Number: GB-MYLANLABS-2012S1016227

PATIENT
  Age: 68 Year
  Sex: Female

DRUGS (7)
  1. BISOPROLOL FUMARATE [Suspect]
     Indication: MYOCARDIAL INFARCTION
     Dates: end: 20120524
  2. LOSARTAN POTASSIUM [Concomitant]
     Indication: BLOOD PRESSURE
  3. BISOPROLOL FUMARATE [Suspect]
     Indication: PRODUCT USED FOR UNKNOWN INDICATION
  4. ASPIRIN [Concomitant]
     Indication: PRODUCT USED FOR UNKNOWN INDICATION
  5. CARVEDILOL [Suspect]
     Indication: PRODUCT USED FOR UNKNOWN INDICATION
     Dates: start: 20120724
  6. TREDAPTIVE [Concomitant]
     Indication: BLOOD CHOLESTEROL INCREASED
     Route: 048
  7. CLOPIDEGREL [Concomitant]
     Indication: MYOCARDIAL INFARCTION
     Route: 048

REACTIONS (5)
  - MALAISE [None]
  - SLEEP DISORDER [None]
  - WEIGHT INCREASED [None]
  - FATIGUE [None]
  - URINARY TRACT INFECTION [None]
